FAERS Safety Report 14564479 (Version 2)
Quarter: 2018Q2

REPORT INFORMATION
  Report Type: Report from Study
  Country: US (occurrence: US)
  Receive Date: 20180222
  Receipt Date: 20180529
  Transmission Date: 20180711
  Serious: Yes (Death, Hospitalization)
  Sender: FDA-Public Use
  Company Number: US-VIFOR (INTERNATIONAL) INC.-VIT-2018-01790

PATIENT
  Age: 83 Year
  Sex: Male

DRUGS (14)
  1. HUMALOG [Concomitant]
     Active Substance: INSULIN LISPRO
  2. MELATONIN [Concomitant]
     Active Substance: MELATONIN
  3. PAROXETINE. [Concomitant]
     Active Substance: PAROXETINE
  4. VELTASSA [Suspect]
     Active Substance: PATIROMER
  5. ACETYLSALICYLIC ACID [Concomitant]
     Active Substance: ASPIRIN
  6. HYDRALAZINE [Concomitant]
     Active Substance: HYDRALAZINE HYDROCHLORIDE
  7. PRAVASTATIN. [Concomitant]
     Active Substance: PRAVASTATIN
  8. VELTASSA [Suspect]
     Active Substance: PATIROMER
     Indication: HYPERKALAEMIA
     Route: 048
     Dates: start: 2017, end: 201803
  9. TERAZOSIN [Concomitant]
     Active Substance: TERAZOSIN\TERAZOSIN HYDROCHLORIDE
  10. BIOTIN~~POTASSIUM~~SODIUM~~FATS NOS~~VITAMINS NOS~~MINERALS NOS~~CARBOHYDRATES NOS~~PROTEINS NOS [Concomitant]
  11. LASIX [Concomitant]
     Active Substance: FUROSEMIDE
  12. SODIUM BICARBONATE. [Concomitant]
     Active Substance: SODIUM BICARBONATE
  13. LANTUS [Concomitant]
     Active Substance: INSULIN GLARGINE
  14. METOPROLOL. [Concomitant]
     Active Substance: METOPROLOL

REACTIONS (3)
  - Death [Fatal]
  - Localised infection [Recovered/Resolved]
  - Drug dose omission [Recovered/Resolved]

NARRATIVE: CASE EVENT DATE: 201801
